FAERS Safety Report 9859898 (Version 2)
Quarter: 2014Q1

REPORT INFORMATION
  Report Type: Report from Study
  Country: US (occurrence: US)
  Receive Date: 20140131
  Receipt Date: 20140131
  Transmission Date: 20141002
  Serious: No
  Sender: FDA-Public Use
  Company Number: US-009507513-1303USA011557

PATIENT
  Age: 63 Year
  Sex: Male
  Weight: 99 kg

DRUGS (3)
  1. REBETOL [Suspect]
     Indication: CHRONIC HEPATITIS C
     Dosage: 1200 MG
     Dates: start: 20120808, end: 20130228
  2. VICTRELIS [Suspect]
     Indication: CHRONIC HEPATITIS C
     Dosage: 2400 MG
     Dates: start: 20130109, end: 20130228
  3. PEGINTERFERON ALFA-2A [Suspect]
     Indication: CHRONIC HEPATITIS C
     Dosage: 180 MICROGRAM, UNK
     Dates: start: 20120808, end: 20130228

REACTIONS (1)
  - Pneumonia chlamydial [Recovered/Resolved]
